FAERS Safety Report 17841920 (Version 1)
Quarter: 2020Q2

REPORT INFORMATION
  Report Type: Spontaneous
  Country: SA (occurrence: SA)
  Receive Date: 20200529
  Receipt Date: 20200529
  Transmission Date: 20200714
  Serious: Yes (Hospitalization, Other)
  Sender: FDA-Public Use
  Company Number: SA-TOLMAR, INC.-20SA021497

PATIENT
  Age: 71 Year
  Sex: Male

DRUGS (1)
  1. ELIGARD [Suspect]
     Active Substance: LEUPROLIDE ACETATE
     Indication: PROSTATE CANCER
     Dosage: UNK, Q 3 MONTH
     Route: 065

REACTIONS (3)
  - Granulomatosis with polyangiitis [Recovered/Resolved]
  - Brain abscess [Recovered/Resolved]
  - Fungal endocarditis [Recovered/Resolved]
